FAERS Safety Report 9669787 (Version 1)
Quarter: 2013Q4

REPORT INFORMATION
  Report Type: Spontaneous
  Country: GB (occurrence: GB)
  Receive Date: 20131105
  Receipt Date: 20131105
  Transmission Date: 20140711
  Serious: Yes (Other)
  Sender: FDA-Public Use
  Company Number: GB-PFIZER INC-2013315001

PATIENT
  Age: 2 Day
  Sex: Female
  Weight: 2.81 kg

DRUGS (11)
  1. NICOTINE [Suspect]
     Dosage: UNK
     Route: 064
  2. SUBUTEX [Suspect]
     Indication: DRUG DEPENDENCE
     Dosage: 8 MG, 1X/DAY
     Route: 064
     Dates: start: 20011220
  3. SUBUTEX [Suspect]
     Dosage: 4 MG, UNK
     Route: 064
  4. SUBUTEX [Suspect]
     Dosage: 2 MG, UNK
     Route: 064
  5. SUBUTEX [Suspect]
     Dosage: 800 UG, UNK
     Route: 064
  6. SUBUTEX [Suspect]
     Dosage: 1.2 MG, UNK
     Route: 064
     Dates: end: 20020706
  7. METHADONE [Suspect]
     Dosage: UNK
     Route: 064
     Dates: start: 2001
  8. ALBUTEROL [Suspect]
     Indication: ASTHMA
     Dosage: UNK
     Route: 064
  9. BECOTIDE [Suspect]
     Dosage: UNK
     Route: 064
  10. ZOPICLONE [Suspect]
     Indication: INSOMNIA
     Dosage: UNK
     Route: 064
  11. VALIUM [Suspect]
     Indication: TREMOR
     Dosage: UNK
     Route: 064

REACTIONS (6)
  - Maternal exposure during pregnancy [Recovered/Resolved]
  - Drug withdrawal syndrome neonatal [Recovered/Resolved]
  - Irritability [Recovered/Resolved]
  - Sneezing [Recovered/Resolved]
  - Crying [Recovered/Resolved]
  - Tremor [Recovered/Resolved]
